FAERS Safety Report 18229943 (Version 2)
Quarter: 2020Q3

REPORT INFORMATION
  Report Type: Spontaneous
  Country: US (occurrence: US)
  Receive Date: 20200903
  Receipt Date: 20200907
  Transmission Date: 20201103
  Serious: No
  Sender: FDA-Public Use
  Company Number: US-TEVA-2020-US-1822528

PATIENT
  Age: 73 Year
  Sex: Male

DRUGS (3)
  1. ATENOLOL TEVA [Suspect]
     Active Substance: ATENOLOL
     Dosage: TRIED TO CUT HIS DOSE IN HALF
     Route: 065
     Dates: start: 2019
  2. ATENOLOL TEVA [Suspect]
     Active Substance: ATENOLOL
     Route: 065
     Dates: start: 202008
  3. ATENOLOL TEVA [Suspect]
     Active Substance: ATENOLOL
     Indication: HEART RATE IRREGULAR
     Route: 065
     Dates: start: 2018

REACTIONS (3)
  - Heart rate decreased [Recovered/Resolved]
  - Product quality issue [Unknown]
  - Drug ineffective [Unknown]

NARRATIVE: CASE EVENT DATE: 202008
